FAERS Safety Report 21961746 (Version 1)
Quarter: 2023Q1

REPORT INFORMATION
  Report Type: Spontaneous
  Country: IT (occurrence: IT)
  Receive Date: 20230207
  Receipt Date: 20230207
  Transmission Date: 20230418
  Serious: Yes (Other)
  Sender: FDA-Public Use
  Company Number: IT-002147023-NVSC2023IT024644

PATIENT
  Age: 51 Year
  Sex: Female

DRUGS (8)
  1. OXALIPLATIN [Suspect]
     Active Substance: OXALIPLATIN
     Indication: Adenocarcinoma gastric
     Dosage: UNK UNK, 7 CYCLES, PREOPERATIVE
     Route: 065
     Dates: start: 201708
  2. OXALIPLATIN [Suspect]
     Active Substance: OXALIPLATIN
     Dosage: UNK , 1 CYCLE, POSTOPERATIVE
     Route: 065
     Dates: end: 201804
  3. LEUCOVORIN CALCIUM [Suspect]
     Active Substance: LEUCOVORIN CALCIUM
     Indication: Adenocarcinoma gastric
     Dosage: UNK, 7 CYCLES, PREOPERATIVE
     Route: 065
     Dates: start: 201708
  4. LEUCOVORIN CALCIUM [Suspect]
     Active Substance: LEUCOVORIN CALCIUM
     Dosage: UNK,1 CYCLE, POSTOPERATIVE
     Route: 065
     Dates: end: 201804
  5. FLUOROURACIL [Suspect]
     Active Substance: FLUOROURACIL
     Indication: Adenocarcinoma gastric
     Dosage: UNK, 7CYCLES, PREOPERATIVE
     Route: 065
     Dates: start: 201708
  6. FLUOROURACIL [Suspect]
     Active Substance: FLUOROURACIL
     Dosage: UNK, 1 CYCLE, POSTOPERATIVE
     Route: 065
     Dates: end: 201804
  7. DOCETAXEL [Suspect]
     Active Substance: DOCETAXEL
     Indication: Adenocarcinoma gastric
     Dosage: UNK,7 CYCLES, PREOPERATIVE
     Route: 065
     Dates: start: 201708
  8. DOCETAXEL [Suspect]
     Active Substance: DOCETAXEL
     Dosage: UNK, 1 CYCLE, POSTOPERATIVE
     Route: 065
     Dates: end: 201804

REACTIONS (3)
  - Adenocarcinoma gastric [Unknown]
  - Malignant neoplasm progression [Unknown]
  - Product use in unapproved indication [Unknown]
